FAERS Safety Report 4737282-2 (Version None)
Quarter: 2005Q3

REPORT INFORMATION
  Report Type: 
  Country: None (occurrence: None)
  Receive Date: 20050728
  Receipt Date: 20050425
  Transmission Date: 20060218
  Serious: No
  Sender: FDA-Public Use
  Company Number: 200512613US

PATIENT
  Age: 65 Year
  Sex: Male
  Weight: 102 kg

DRUGS (6)
  1. KETEK [Suspect]
     Indication: INFECTION
     Dosage: 800 MG/DAY
     Dates: start: 20050201, end: 20050201
  2. KETEK [Suspect]
     Indication: INFECTION
     Dosage: 800 MG/DAY
     Dates: start: 20050322, end: 20050326
  3. PSEUDOEPHEDRINE HYDROCHLORIDE, FEXOFENADINE (ALLEGRA-D) [Concomitant]
  4. LIPITOR [Concomitant]
  5. LISINOPRIL [Concomitant]
  6. ATENOLOL [Concomitant]

REACTIONS (1)
  - DIPLOPIA [None]
